FAERS Safety Report 5694195-X (Version None)
Quarter: 2008Q2

REPORT INFORMATION
  Report Type: 
  Country: None (occurrence: None)
  Receive Date: 20080402
  Receipt Date: 20080326
  Transmission Date: 20081010
  Serious: Yes (Death, Hospitalization)
  Sender: FDA-Public Use
  Company Number: FABR-11343

PATIENT
  Age: 66 Year
  Sex: Female
  Weight: 41 kg

DRUGS (3)
  1. FABRAZYME [Suspect]
     Indication: FABRY'S DISEASE
     Dosage: 40 MG, Q2W, INTRAVENOUS
     Route: 042
     Dates: start: 20041020, end: 20051209
  2. BETAMETHASONE [Concomitant]
  3. C-CHLORPHENIRAMINE MALEATE [Concomitant]

REACTIONS (9)
  - CARDIAC FAILURE ACUTE [None]
  - CARDIAC HYPERTROPHY [None]
  - CONDITION AGGRAVATED [None]
  - DILATATION VENTRICULAR [None]
  - FABRY'S DISEASE [None]
  - GASTROENTERITIS STAPHYLOCOCCAL [None]
  - PNEUMONIA [None]
  - PULMONARY HAEMORRHAGE [None]
  - RENAL FAILURE ACUTE [None]
